FAERS Safety Report 7883413-5 (Version None)
Quarter: 2011Q4

REPORT INFORMATION
  Report Type: 
  Country: None (occurrence: None)
  Receive Date: 20111102
  Receipt Date: 20111021
  Transmission Date: 20120403
  Serious: Yes (Other)
  Sender: FDA-Public Use
  Company Number: US-BAYER-2011-063093

PATIENT
  Age: 42 Year
  Sex: Female
  Weight: 65.76 kg

DRUGS (2)
  1. ASPIRIN [Concomitant]
  2. YAZ [Suspect]
     Dosage: UNK
     Dates: start: 20090831, end: 20091101

REACTIONS (6)
  - INJURY [None]
  - ANXIETY [None]
  - PAIN [None]
  - DEEP VEIN THROMBOSIS [None]
  - EMOTIONAL DISTRESS [None]
  - GENERAL PHYSICAL HEALTH DETERIORATION [None]
